FAERS Safety Report 5511095-6 (Version None)
Quarter: 2007Q4

REPORT INFORMATION
  Report Type: 
  Country: None (occurrence: None)
  Receive Date: 20071107
  Receipt Date: 20071026
  Transmission Date: 20080405
  Serious: Yes (Other)
  Sender: FDA-Public Use
  Company Number: GXKR2007GB09246

PATIENT
  Age: 67 Year
  Sex: Female
  Weight: 84 kg

DRUGS (4)
  1. SERTRALINE [Suspect]
     Indication: ANXIETY
     Dosage: 50 MG,
     Dates: start: 20070522, end: 20070526
  2. GINGER (ZINGIBER OFFICINALE RHIZOME) [Concomitant]
  3. GINSENG (GINSENG, GINSENG NOS) [Concomitant]
  4. KALMS (ASAFETIDA, FERULA ASSAFOETIDA, GENTIAN, GENTIANA LUTEA ROOT, HU [Concomitant]

REACTIONS (5)
  - CRYING [None]
  - DIARRHOEA [None]
  - NAUSEA [None]
  - SLEEP DISORDER [None]
  - TREMOR [None]
